FAERS Safety Report 21655931 (Version 1)
Quarter: 2022Q4

REPORT INFORMATION
  Report Type: Spontaneous
  Country: RU (occurrence: None)
  Receive Date: 20221129
  Receipt Date: 20221129
  Transmission Date: 20230113
  Serious: Yes (Other)
  Sender: FDA-Public Use
  Company Number: RU-ROCHE-3224885

PATIENT
  Age: 49 Year
  Sex: Female

DRUGS (4)
  1. ADO-TRASTUZUMAB EMTANSINE [Suspect]
     Active Substance: ADO-TRASTUZUMAB EMTANSINE
     Indication: Product used for unknown indication
     Route: 041
  2. PERTUZUMAB [Suspect]
     Active Substance: PERTUZUMAB
     Indication: Product used for unknown indication
     Route: 065
  3. CARBOPLATIN [Suspect]
     Active Substance: CARBOPLATIN
     Indication: Product used for unknown indication
     Route: 065
  4. DOCETAXEL [Suspect]
     Active Substance: DOCETAXEL
     Indication: Product used for unknown indication
     Route: 065

REACTIONS (14)
  - Pulmonary fibrosis [Unknown]
  - Cholecystitis chronic [Unknown]
  - Metastases to lymph nodes [Unknown]
  - Hydrocephalus [Unknown]
  - Intracranial mass [Unknown]
  - Brain oedema [Unknown]
  - Metastases to central nervous system [Unknown]
  - Breast cancer [Unknown]
  - Hyperplasia [Unknown]
  - Ill-defined disorder [Unknown]
  - Liver disorder [Unknown]
  - Pancreatic disorder [Unknown]
  - Lung neoplasm [Unknown]
  - Intracranial pressure increased [Unknown]
